FAERS Safety Report 21579691 (Version 3)
Quarter: 2022Q4

REPORT INFORMATION
  Report Type: Spontaneous
  Country: CN (occurrence: CN)
  Receive Date: 20221110
  Receipt Date: 20221128
  Transmission Date: 20230112
  Serious: Yes (Hospitalization, Disabling, Other)
  Sender: FDA-Public Use
  Company Number: CN-AstraZeneca-2022A362121

PATIENT
  Sex: Female
  Weight: 69 kg

DRUGS (1)
  1. LINACLOTIDE [Suspect]
     Active Substance: LINACLOTIDE
     Indication: Constipation
     Dosage: 290 MILLIGRAM, QD
     Route: 048
     Dates: start: 20220805, end: 20220814

REACTIONS (2)
  - Micturition urgency [Recovered/Resolved]
  - Urinary incontinence [Recovered/Resolved]

NARRATIVE: CASE EVENT DATE: 20220809
